FAERS Safety Report 9610869 (Version 1)
Quarter: 2013Q4

REPORT INFORMATION
  Report Type: Report from Study
  Country: GR (occurrence: GR)
  Receive Date: 20131009
  Receipt Date: 20131009
  Transmission Date: 20140711
  Serious: Yes (Other)
  Sender: FDA-Public Use
  Company Number: GR-ROCHE-1286289

PATIENT
  Age: 67 Year
  Sex: Female
  Weight: 83 kg

DRUGS (3)
  1. ROACTEMRA [Suspect]
     Indication: RHEUMATOID ARTHRITIS
     Route: 042
     Dates: start: 201306
  2. PLAQUENIL [Suspect]
     Indication: PRODUCT USED FOR UNKNOWN INDICATION
     Dosage: 2 TABS
     Route: 048
     Dates: start: 2009
  3. T4 [Concomitant]
     Indication: THYROID DISORDER
     Route: 048
     Dates: start: 2008

REACTIONS (4)
  - Cataract [Not Recovered/Not Resolved]
  - Systemic lupus erythematosus [Unknown]
  - Dry eye [Unknown]
  - Dry mouth [Unknown]
